FAERS Safety Report 24190364 (Version 1)
Quarter: 2024Q3

REPORT INFORMATION
  Report Type: Spontaneous
  Country: FR (occurrence: FR)
  Receive Date: 20240808
  Receipt Date: 20240808
  Transmission Date: 20241016
  Serious: Yes (Other)
  Sender: SANOFI AVENTIS
  Company Number: None

PATIENT
  Age: 65 Year
  Sex: Female
  Weight: 48 kg

DRUGS (2)
  1. LOVENOX [Suspect]
     Active Substance: ENOXAPARIN SODIUM
     Indication: Mitral valve replacement
     Dosage: UNK
     Route: 058
     Dates: start: 20240618, end: 20240623
  2. HEPARIN SODIUM [Suspect]
     Active Substance: HEPARIN SODIUM
     Indication: Mitral valve replacement
     Dosage: UNK
     Route: 042
     Dates: start: 20240614, end: 20240618

REACTIONS (2)
  - Atrial thrombosis [Not Recovered/Not Resolved]
  - Heparin-induced thrombocytopenia [Recovered/Resolved]

NARRATIVE: CASE EVENT DATE: 20240624
